FAERS Safety Report 10358019 (Version 1)
Quarter: 2014Q3

REPORT INFORMATION
  Report Type: Spontaneous
  Country: US (occurrence: None)
  Receive Date: 20140730
  Receipt Date: 20140730
  Transmission Date: 20150326
  Serious: Yes (Other)
  Sender: FDA-Public Use
  Company Number: UNT-2014-004477

PATIENT
  Age: 79 Year
  Sex: Male

DRUGS (3)
  1. ADCIRCA (TADLAFIL) [Concomitant]
  2. REMODULIN [Suspect]
     Active Substance: TREPROSTINIL
     Indication: PRODUCT USED FOR UNKNOWN INDICATION
     Route: 058
  3. LETAIRIS [Concomitant]
     Active Substance: AMBRISENTAN

REACTIONS (5)
  - Oxygen saturation decreased [None]
  - Device infusion issue [None]
  - Dyspnoea [None]
  - Drug dose omission [None]
  - Oxygen consumption increased [None]
